FAERS Safety Report 20247344 (Version 2)
Quarter: 2022Q1

REPORT INFORMATION
  Report Type: Spontaneous
  Country: BE (occurrence: BE)
  Receive Date: 20211229
  Receipt Date: 20220323
  Transmission Date: 20220423
  Serious: Yes (Death, Hospitalization)
  Sender: FDA-Public Use
  Company Number: BE-PFIZER INC-202101855327

PATIENT
  Age: 41 Year
  Sex: Female

DRUGS (4)
  1. XELJANZ [Suspect]
     Active Substance: TOFACITINIB CITRATE
     Indication: COVID-19
     Dosage: 10 MG, 2X/DAY
     Dates: start: 20211129, end: 20211213
  2. DEXAMETHASONE [Concomitant]
     Active Substance: DEXAMETHASONE
     Dosage: 6 MG, 1X/DAY
     Dates: start: 20211128, end: 20211207
  3. ENOXAPARIN [Concomitant]
     Active Substance: ENOXAPARIN
     Dosage: 4000 IU, 1X/DAY
     Dates: start: 20211127, end: 20211202
  4. ENOXAPARIN [Concomitant]
     Active Substance: ENOXAPARIN
     Dosage: 4000 IU, 2X/DAY (DURING ICU STAY)
     Dates: start: 20211202, end: 20211219

REACTIONS (2)
  - Respiratory failure [Fatal]
  - Off label use [Unknown]

NARRATIVE: CASE EVENT DATE: 20210101
